FAERS Safety Report 20867906 (Version 1)
Quarter: 2022Q2

REPORT INFORMATION
  Report Type: Report from Study
  Country: NL (occurrence: NL)
  Receive Date: 20220524
  Receipt Date: 20220524
  Transmission Date: 20220721
  Serious: Yes (Other)
  Sender: FDA-Public Use
  Company Number: NL-NOVARTISPH-NVSC2022NL110199

PATIENT

DRUGS (3)
  1. TRAMETINIB [Suspect]
     Active Substance: TRAMETINIB
     Indication: Metastatic malignant melanoma
     Dosage: UNK
     Route: 065
  2. TRAMETINIB [Suspect]
     Active Substance: TRAMETINIB
     Indication: Optic glioma
  3. TRAMETINIB [Suspect]
     Active Substance: TRAMETINIB
     Indication: Neurofibroma

REACTIONS (6)
  - Mouth haemorrhage [Unknown]
  - Epistaxis [Unknown]
  - Ear infection [Unknown]
  - Skin discolouration [Unknown]
  - Hair colour changes [Unknown]
  - Growth of eyelashes [Unknown]
